FAERS Safety Report 4440223-9 (Version None)
Quarter: 2004Q3

REPORT INFORMATION
  Report Type: 
  Country: None (occurrence: None)
  Receive Date: 20040831
  Receipt Date: 20040816
  Transmission Date: 20050211
  Serious: Yes (Hospitalization)
  Sender: FDA-Public Use
  Company Number: 04P-056-0270885-00

PATIENT
  Age: 53 Year
  Sex: Female

DRUGS (7)
  1. HUMIRA [Suspect]
     Dosage: 1 IN 2 WK, SUBCUTANEOUS
     Route: 058
     Dates: start: 20040615, end: 20040701
  2. MISOPROSTOL [Concomitant]
  3. NAPROXEN SODIUM [Concomitant]
  4. PREDNISOLONE SODIUM PHOSPHATE [Concomitant]
  5. CLIOGEST [Concomitant]
  6. LEKOVIT CA [Concomitant]
  7. CO-DAFALGAN [Concomitant]

REACTIONS (6)
  - CHILLS [None]
  - HYPERTHERMIA [None]
  - INSOMNIA [None]
  - NAUSEA [None]
  - PYREXIA [None]
  - RASH MORBILLIFORM [None]
